FAERS Safety Report 11723209 (Version 1)
Quarter: 2015Q4

REPORT INFORMATION
  Report Type: Spontaneous
  Country: US (occurrence: None)
  Receive Date: 20151110
  Receipt Date: 20151110
  Transmission Date: 20160304
  Serious: Yes (Other)
  Sender: FDA-Public Use
  Company Number: None

PATIENT
  Age: 62 Year
  Sex: Male
  Weight: 79.38 kg

DRUGS (2)
  1. PREGNYL [Suspect]
     Active Substance: CHORIOGONADOTROPIN ALFA
     Indication: SPERM CONCENTRATION INCREASED
     Dosage: 25 UNITS SUBCUTANEOUSLY, GIVEN IN/TO/UNDER THE SKIN
     Route: 058
     Dates: start: 20151001, end: 20151014
  2. LISINOPRIL. [Concomitant]
     Active Substance: LISINOPRIL

REACTIONS (2)
  - VIIth nerve paralysis [None]
  - Herpes simplex [None]

NARRATIVE: CASE EVENT DATE: 20151014
